FAERS Safety Report 6694013 (Version 2)
Quarter: 2020Q3

REPORT INFORMATION
  Report Type: Report from Study
  Country: US (occurrence: US)
  Receive Date: 20080709
  Receipt Date: 20080801
  Transmission Date: 20201104
  Serious: Yes (Hospitalization)
  Sender: FDA-Public Use
  Company Number: US-JNJFOC-20080700303

PATIENT
  Age: 61 Year
  Sex: Male
  Weight: 52 kg

DRUGS (12)
  1. NORVIR [Concomitant]
     Active Substance: RITONAVIR
     Route: 048
  2. PREZISTA [Suspect]
     Active Substance: DARUNAVIR ETHANOLATE
     Route: 048
  3. ETRAVIRINE [Suspect]
     Active Substance: ETRAVIRINE
     Indication: HIV INFECTION
     Route: 048
  4. EPIVIR [Concomitant]
     Active Substance: LAMIVUDINE
     Indication: HIV INFECTION
     Route: 048
  5. MK?0518 [Concomitant]
     Route: 048
  6. MK?0518 [Concomitant]
     Indication: HIV INFECTION
     Route: 048
  7. ETRAVIRINE [Suspect]
     Active Substance: ETRAVIRINE
     Route: 048
  8. FUZEON [Concomitant]
     Active Substance: ENFUVIRTIDE
     Route: 058
  9. FUZEON [Concomitant]
     Active Substance: ENFUVIRTIDE
     Indication: HIV INFECTION
     Route: 058
  10. PREZISTA [Suspect]
     Active Substance: DARUNAVIR ETHANOLATE
     Indication: HIV INFECTION
     Route: 048
  11. NORVIR [Concomitant]
     Active Substance: RITONAVIR
     Indication: HIV INFECTION
     Route: 048
  12. FUZEON [Concomitant]
     Active Substance: ENFUVIRTIDE
     Route: 058

REACTIONS (1)
  - Pancreatitis chronic [Not Recovered/Not Resolved]

NARRATIVE: CASE EVENT DATE: 20071103
